FAERS Safety Report 9924684 (Version 2)
Quarter: 2014Q2

REPORT INFORMATION
  Report Type: Spontaneous
  Country: CA (occurrence: CA)
  Receive Date: 20140226
  Receipt Date: 20140414
  Transmission Date: 20141212
  Serious: Yes (Hospitalization, Other)
  Sender: FDA-Public Use
  Company Number: CA-JNJFOC-20140210710

PATIENT
  Sex: Male
  Weight: 72.58 kg

DRUGS (12)
  1. STELARA [Suspect]
     Indication: PSORIASIS
     Route: 058
  2. STELARA [Suspect]
     Indication: PSORIASIS
     Route: 058
  3. ALTACE [Concomitant]
     Route: 048
  4. HYDROCHLOROTHIAZIDE [Concomitant]
     Route: 065
  5. PANTOLOC [Concomitant]
     Route: 048
  6. PANTOLOC [Concomitant]
     Route: 048
  7. MICARDIS [Concomitant]
     Route: 065
  8. ATORVASTATIN [Concomitant]
     Route: 065
  9. BISOPROLOL [Concomitant]
     Route: 048
  10. ECASA [Concomitant]
     Route: 048
  11. LATANOPROST [Concomitant]
     Route: 031
  12. BETAMETHASONE [Concomitant]
     Route: 061

REACTIONS (2)
  - Coronary artery disease [Recovered/Resolved]
  - Atrial fibrillation [Recovered/Resolved]
